FAERS Safety Report 17152074 (Version 1)
Quarter: 2019Q4

REPORT INFORMATION
  Report Type: Spontaneous
  Country: US (occurrence: US)
  Receive Date: 20191121
  Receipt Date: 20191121
  Transmission Date: 20200122
  Serious: Yes (Hospitalization)
  Sender: FDA-Public Use
  Company Number: None

PATIENT
  Age: 4 Year
  Sex: Male

DRUGS (8)
  1. PULMOZYME [Suspect]
     Active Substance: DORNASE ALFA
     Indication: CYSTIC FIBROSIS
     Dosage: ?          OTHER DOSE:2.5 MG;?
     Route: 055
     Dates: start: 20170329
  2. BUDESONIDE. [Concomitant]
     Active Substance: BUDESONIDE
  3. SYNTHROID [Concomitant]
     Active Substance: LEVOTHYROXINE SODIUM
  4. ACID REDUCER [Concomitant]
  5. XOPENEX [Concomitant]
     Active Substance: LEVALBUTEROL HYDROCHLORIDE
  6. KEPPRA [Concomitant]
     Active Substance: LEVETIRACETAM
  7. PREVACID [Concomitant]
     Active Substance: LANSOPRAZOLE
  8. ZINC. [Concomitant]
     Active Substance: ZINC

REACTIONS (1)
  - Pyrexia [None]

NARRATIVE: CASE EVENT DATE: 201910
